FAERS Safety Report 6657761-0 (Version None)
Quarter: 2010Q1

REPORT INFORMATION
  Report Type: 
  Country: None (occurrence: None)
  Receive Date: 20100330
  Receipt Date: 20090929
  Transmission Date: 20100710
  Serious: No
  Sender: FDA-Public Use
  Company Number: US-TYCO HEALTHCARE/MALLINCKRODT-T200901817

PATIENT
  Sex: Male

DRUGS (2)
  1. METHADONE [Suspect]
     Indication: PAIN
     Dosage: 3-4 TABS Q 7-8H
     Dates: start: 20080101
  2. METHADOSE [Suspect]

REACTIONS (5)
  - BONE DISORDER [None]
  - CONSTIPATION [None]
  - DRUG DIVERSION [None]
  - DRUG INEFFECTIVE [None]
  - DRY MOUTH [None]
